FAERS Safety Report 4925236-2 (Version None)
Quarter: 2006Q1

REPORT INFORMATION
  Report Type: 
  Country: None (occurrence: None)
  Receive Date: 20060223
  Receipt Date: 20060223
  Transmission Date: 20060701
  Serious: No
  Sender: FDA-Public Use
  Company Number: None

PATIENT
  Sex: Female

DRUGS (1)
  1. AREDIA [Suspect]

REACTIONS (11)
  - BONE DISORDER [None]
  - HEADACHE [None]
  - HYPOAESTHESIA [None]
  - HYPOAESTHESIA ORAL [None]
  - IMPAIRED HEALING [None]
  - JAW DISORDER [None]
  - MASTICATION DISORDER [None]
  - PAIN IN JAW [None]
  - THROMBOSIS [None]
  - TOOTHACHE [None]
  - WISDOM TEETH REMOVAL [None]
